FAERS Safety Report 4275610-5 (Version None)
Quarter: 2004Q1

REPORT INFORMATION
  Report Type: 
  Country: None (occurrence: None)
  Receive Date: 20040116
  Receipt Date: 20040106
  Transmission Date: 20041129
  Serious: Yes (Other)
  Sender: FDA-Public Use
  Company Number: US-JNJFOC-20030805986

PATIENT
  Age: 75 Year
  Sex: Male

DRUGS (5)
  1. REMICADE [Suspect]
     Indication: RHEUMATOID ARTHRITIS
     Dosage: 5 MG/KG, 1 IN 18 WEEK, INTRAVENOUS
     Route: 042
     Dates: start: 20030610
  2. METHOTREXATE [Concomitant]
  3. VIOXX [Concomitant]
  4. CARDIZEM [Concomitant]
  5. LOTENSIN [Concomitant]

REACTIONS (2)
  - CHRONIC OBSTRUCTIVE AIRWAYS DISEASE [None]
  - TUBERCULIN TEST POSITIVE [None]
